FAERS Safety Report 5824523-3 (Version None)
Quarter: 2008Q3

REPORT INFORMATION
  Report Type: 
  Country: None (occurrence: None)
  Receive Date: 20080728
  Receipt Date: 20080717
  Transmission Date: 20090109
  Serious: Yes (Death)
  Sender: FDA-Public Use
  Company Number: GB-TEVA-174588ISR

PATIENT
  Age: 77 Year
  Sex: Male
  Weight: 89 kg

DRUGS (1)
  1. MELOXICAM [Suspect]
     Route: 048
     Dates: start: 20050101

REACTIONS (2)
  - CORONARY ARTERY DISEASE [None]
  - VENTRICULAR HYPERTROPHY [None]
